FAERS Safety Report 8044754-4 (Version None)
Quarter: 2012Q1

REPORT INFORMATION
  Report Type: 
  Country: None (occurrence: None)
  Receive Date: 20120113
  Receipt Date: 20120110
  Transmission Date: 20120608
  Serious: Yes (Death, Other)
  Sender: FDA-Public Use
  Company Number: US-ELI_LILLY_AND_COMPANY-US201109003378

PATIENT
  Age: 78 Year
  Sex: Male
  Weight: 102.4 kg

DRUGS (3)
  1. CYMBALTA [Suspect]
     Dosage: 60 MG, BID
     Route: 048
     Dates: start: 20101201
  2. RISPERDAL [Concomitant]
  3. CYMBALTA [Suspect]
     Dosage: 120 MG, QD
     Route: 048

REACTIONS (2)
  - HEPATIC CANCER METASTATIC [None]
  - HEPATIC ENZYME INCREASED [None]
